FAERS Safety Report 25631518 (Version 1)
Quarter: 2025Q3

REPORT INFORMATION
  Report Type: Spontaneous
  Country: US (occurrence: US)
  Receive Date: 20250801
  Receipt Date: 20250801
  Transmission Date: 20251021
  Serious: No
  Sender: BRISTOL-MYERS SQUIBB COMPANY
  Company Number: US-BRISTOL-MYERS SQUIBB COMPANY-2025-107296

PATIENT
  Age: 77 Year
  Sex: Male
  Weight: 91.63 kg

DRUGS (1)
  1. REVLIMID [Suspect]
     Active Substance: LENALIDOMIDE
     Indication: Plasma cell myeloma
     Route: 048

REACTIONS (6)
  - Hiccups [Unknown]
  - Tremor [Unknown]
  - Hypoaesthesia [Unknown]
  - Nausea [Unknown]
  - Muscle spasms [Unknown]
  - Hypoaesthesia oral [Unknown]
